FAERS Safety Report 9051664 (Version 1)
Quarter: 2013Q1

REPORT INFORMATION
  Report Type: Spontaneous
  Country: US (occurrence: US)
  Receive Date: 20130207
  Receipt Date: 20130207
  Transmission Date: 20140127
  Serious: No
  Sender: FDA-Public Use
  Company Number: US-BIOGENIDEC-2013BI009972

PATIENT
  Age: 39 Year
  Sex: Female

DRUGS (1)
  1. TYSABRI [Suspect]
     Indication: MULTIPLE SCLEROSIS
     Route: 042
     Dates: start: 20110401

REACTIONS (4)
  - Decreased immune responsiveness [Recovered/Resolved]
  - Gastroenteritis viral [Recovered/Resolved]
  - Pharyngitis streptococcal [Recovered/Resolved]
  - Urinary tract infection [Recovered/Resolved]
